FAERS Safety Report 5622572-1 (Version None)
Quarter: 2008Q1

REPORT INFORMATION
  Report Type: 
  Country: None (occurrence: None)
  Receive Date: 20080114
  Receipt Date: 20071112
  Transmission Date: 20080703
  Serious: Yes (Other)
  Sender: FDA-Public Use
  Company Number: A03200706518

PATIENT

DRUGS (2)
  1. PLAVIX [Suspect]
     Dosage: - ORAL
     Route: 048
  2. LOVENOX [Suspect]
     Dosage: 1 MG/KG

REACTIONS (1)
  - ABDOMINAL WALL HAEMATOMA [None]
